FAERS Safety Report 4324139-4 (Version None)
Quarter: 2004Q1

REPORT INFORMATION
  Report Type: 
  Country: None (occurrence: None)
  Receive Date: 20040326
  Receipt Date: 20031229
  Transmission Date: 20041129
  Serious: No
  Sender: FDA-Public Use
  Company Number: US-GLAXOSMITHKLINE-A0490788A

PATIENT
  Age: 57 Year
  Sex: Female

DRUGS (4)
  1. ADVAIR DISKUS 100/50 [Suspect]
     Indication: ASTHMA
     Dosage: 1PUFF TWICE PER DAY
     Route: 055
     Dates: start: 20010101
  2. ATACAND [Suspect]
     Route: 065
  3. PROTONIX [Concomitant]
  4. ACCOLATE [Concomitant]

REACTIONS (1)
  - ASTHMA [None]
